FAERS Safety Report 7627653-9 (Version None)
Quarter: 2011Q3

REPORT INFORMATION
  Report Type: 
  Country: None (occurrence: None)
  Receive Date: 20110721
  Receipt Date: 20110718
  Transmission Date: 20111222
  Serious: Yes (Hospitalization)
  Sender: FDA-Public Use
  Company Number: US-BAYER-2011-054382

PATIENT
  Age: 83 Year
  Sex: Male

DRUGS (3)
  1. ACETYLSALICYLIC ACID SRT [Suspect]
     Dosage: 100 MG, UNK
     Dates: start: 20110317, end: 20110317
  2. SAXAGLIPTIN OR PLACEBO [Suspect]
     Indication: TYPE 2 DIABETES MELLITUS
     Dosage: UNK
     Dates: start: 20101217
  3. ACETYLSALICYLIC ACID SRT [Suspect]
     Dosage: 100 MG, UNK
     Dates: start: 20101217, end: 20101217

REACTIONS (13)
  - FATIGUE [None]
  - CAROTID ARTERY DISEASE [None]
  - ARTERIOSCLEROSIS [None]
  - NAUSEA [None]
  - FAECES DISCOLOURED [None]
  - VERTIGO [None]
  - DIZZINESS [None]
  - ASTHENIA [None]
  - VERTIGO POSITIONAL [None]
  - VOMITING [None]
  - WEIGHT DECREASED [None]
  - FLANK PAIN [None]
  - GASTRITIS [None]
